FAERS Safety Report 16363197 (Version 1)
Quarter: 2019Q3

REPORT INFORMATION
  Report Type: Spontaneous
  Country: US (occurrence: US)
  Receive Date: 20190527
  Receipt Date: 20190527
  Transmission Date: 20191004
  Serious: No
  Sender: FDA-Public Use
  Company Number: None

PATIENT
  Age: 36 Year
  Sex: Female
  Weight: 72 kg

DRUGS (7)
  1. MARINOL [Concomitant]
     Active Substance: DRONABINOL
  2. AZITHROMYCIN 250MG TABLETS, USP [Suspect]
     Active Substance: AZITHROMYCIN
     Indication: ACUTE SINUSITIS
     Dosage: ?          QUANTITY:1 TABLET(S);?
     Route: 048
     Dates: start: 20190525, end: 20190526
  3. IBUPROFEN. [Concomitant]
     Active Substance: IBUPROFEN
  4. LEXAPRO [Concomitant]
     Active Substance: ESCITALOPRAM OXALATE
  5. ZANAFLEX [Concomitant]
     Active Substance: TIZANIDINE HYDROCHLORIDE
  6. VYVANSE [Concomitant]
     Active Substance: LISDEXAMFETAMINE DIMESYLATE
  7. GABAPENTIN. [Concomitant]
     Active Substance: GABAPENTIN

REACTIONS (5)
  - Heart rate decreased [None]
  - Angioedema [None]
  - Chest discomfort [None]
  - Heart rate increased [None]
  - Rash generalised [None]

NARRATIVE: CASE EVENT DATE: 20190526
